FAERS Safety Report 18067952 (Version 1)
Quarter: 2020Q3

REPORT INFORMATION
  Report Type: Spontaneous
  Country: CN (occurrence: CN)
  Receive Date: 20200724
  Receipt Date: 20200724
  Transmission Date: 20201103
  Serious: Yes (Other)
  Sender: FDA-Public Use
  Company Number: CN-PFIZER INC-2020280938

PATIENT
  Age: 85 Year
  Sex: Female
  Weight: 43 kg

DRUGS (4)
  1. TYGACIL [Suspect]
     Active Substance: TIGECYCLINE
     Indication: INFECTION
     Dosage: 50.000 MG, 2X/DAY
     Route: 041
     Dates: start: 20200701, end: 20200709
  2. COLISTIN SULFATE [Suspect]
     Active Substance: COLISTIN SULFATE
     Indication: INFECTION
     Dosage: 500000 IU, 2X/DAY
     Route: 041
     Dates: start: 20200705, end: 20200709
  3. SODIUM CHLORIDE. [Concomitant]
     Active Substance: SODIUM CHLORIDE
     Indication: VEHICLE SOLUTION USE
     Dosage: 50.000 ML, 2X/DAY
     Route: 041
     Dates: start: 20200701, end: 20200709
  4. GLUCOSE [Concomitant]
     Active Substance: DEXTROSE
     Indication: VEHICLE SOLUTION USE
     Dosage: 500.000 ML, 2X/DAY
     Route: 041
     Dates: start: 20200705, end: 20200709

REACTIONS (2)
  - Hepatic function abnormal [Recovering/Resolving]
  - Renal impairment [Recovering/Resolving]

NARRATIVE: CASE EVENT DATE: 20200709
